FAERS Safety Report 4745091-3 (Version None)
Quarter: 2005Q3

REPORT INFORMATION
  Report Type: 
  Country: None (occurrence: None)
  Receive Date: 20050812
  Receipt Date: 20050812
  Transmission Date: 20060218
  Serious: Yes (Other)
  Sender: FDA-Public Use
  Company Number: None

PATIENT
  Age: 57 Year
  Sex: Female
  Weight: 83.4619 kg

DRUGS (1)
  1. FLUOXETINE [Suspect]
     Indication: DEPRESSION
     Dosage: 40 MG ONE QD
     Dates: start: 20050409, end: 20050412

REACTIONS (4)
  - ANXIETY [None]
  - FLASHBACK [None]
  - HOT FLUSH [None]
  - NIGHTMARE [None]
